FAERS Safety Report 19792989 (Version 2)
Quarter: 2021Q4

REPORT INFORMATION
  Report Type: Report from Study
  Country: NL (occurrence: NL)
  Receive Date: 20210906
  Receipt Date: 20211117
  Transmission Date: 20220303
  Serious: Yes (Other)
  Sender: FDA-Public Use
  Company Number: NL-SA-SAC20210903000627

PATIENT
  Age: 62 Year

DRUGS (1)
  1. DUPILUMAB [Suspect]
     Active Substance: DUPILUMAB
     Indication: Dermatitis atopic
     Dosage: 300 MG, Q4W
     Dates: start: 20171220, end: 20201112

REACTIONS (3)
  - Lymphoma [Unknown]
  - Conjunctivitis [Unknown]
  - Product use issue [Unknown]

NARRATIVE: CASE EVENT DATE: 20171220
